FAERS Safety Report 7395286-8 (Version None)
Quarter: 2011Q2

REPORT INFORMATION
  Report Type: 
  Country: None (occurrence: None)
  Receive Date: 20110405
  Receipt Date: 20110404
  Transmission Date: 20111010
  Serious: Yes (Other)
  Sender: FDA-Public Use
  Company Number: AU-AMGEN-KDC428893

PATIENT
  Age: 67 Year
  Sex: Male

DRUGS (24)
  1. DOCETAXEL [Concomitant]
     Dosage: 56 MG, Q3WK
     Route: 042
     Dates: start: 20100413
  2. SELENIUM [Concomitant]
     Dosage: UNK UNK, QD
     Route: 048
     Dates: start: 20100301
  3. DILTIAZEM HCL [Concomitant]
     Dosage: 180 MG, QD
     Route: 048
     Dates: start: 20100416, end: 20100510
  4. ISORDIL [Concomitant]
     Dosage: 10 MG, TID
     Route: 048
     Dates: start: 20100422, end: 20100422
  5. FLUOROPYRIMIDINE [Suspect]
     Dosage: 1788 MG, UNK
     Route: 042
     Dates: start: 20100413
  6. ASCORBIC ACID [Concomitant]
     Dosage: UNK UNK, TID
     Route: 048
     Dates: start: 20100301
  7. TROPISETRON [Concomitant]
     Dosage: 5 MG, Q3WK
     Route: 042
     Dates: start: 20100414, end: 20100416
  8. FLUDROCORTISONE [Concomitant]
     Dosage: 100 A?G, QD
     Route: 048
     Dates: start: 20100422
  9. DEXAMETHASONE [Concomitant]
     Dosage: UNK UNK, UNK
     Dates: start: 20100413
  10. VITAMIN E [Concomitant]
     Dosage: UNK UNK, QD
     Route: 048
     Dates: start: 20100301
  11. ECHINACEA EXTRACT [Concomitant]
     Dosage: UNK UNK, QD
     Route: 048
     Dates: start: 20100301, end: 20100421
  12. DIGOXIN [Concomitant]
     Dosage: UNK UNK, UNK
     Dates: start: 20100416
  13. PANITUMUMAB [Suspect]
     Indication: GASTROOESOPHAGEAL CANCER
     Dosage: 666 MG, Q3WK
     Route: 042
     Dates: start: 20100413
  14. LOVAZA [Concomitant]
     Dosage: 10 ML, BID
     Route: 048
     Dates: start: 20100301
  15. EMEND [Concomitant]
     Dosage: UNK UNK, UNK
     Route: 048
     Dates: start: 20100414, end: 20100505
  16. NEXIUM [Concomitant]
     Dosage: 40 MG, QD
     Route: 048
     Dates: start: 20100324
  17. MAGNESIUM [Concomitant]
     Dosage: 10 MMOL, UNK
     Route: 042
     Dates: start: 20100416, end: 20100416
  18. CISPLATIN [Suspect]
     Dosage: 112 MG, Q3WK
     Route: 042
     Dates: start: 20100413
  19. MULTIVIT [Concomitant]
     Dosage: UNK UNK, QD
     Route: 048
     Dates: start: 20100301
  20. COENZYME Q10 [Concomitant]
     Dosage: UNK UNK, BID
     Route: 048
     Dates: start: 20100301
  21. SYNACTHEN [Concomitant]
     Dosage: 250 A?G, UNK
     Route: 042
     Dates: start: 20100423, end: 20100423
  22. ZINC [Concomitant]
     Dosage: UNK UNK, QD
     Route: 048
     Dates: start: 20100301, end: 20100421
  23. ASPIRIN [Concomitant]
     Dosage: 100 MG, QD
     Route: 048
     Dates: start: 20100416
  24. METOPROLOL [Concomitant]
     Dosage: 50 MG, UNK
     Route: 048
     Dates: start: 20100416

REACTIONS (2)
  - DIARRHOEA [None]
  - MOUTH ULCERATION [None]
